FAERS Safety Report 10305193 (Version 1)
Quarter: 2014Q3

REPORT INFORMATION
  Report Type: Spontaneous
  Country: US (occurrence: None)
  Receive Date: 20140711
  Receipt Date: 20140711
  Transmission Date: 20150326
  Serious: Yes (Life-Threatening, Hospitalization, Other)
  Sender: FDA-Public Use
  Company Number: None

PATIENT
  Age: 42 Year
  Sex: Female
  Weight: 64.86 kg

DRUGS (14)
  1. ARTEMNESIA [Concomitant]
  2. VITAMIN E [Concomitant]
     Active Substance: .ALPHA.-TOCOPHEROL
  3. VITAMIN B COMPLEX [Concomitant]
     Active Substance: CYANOCOBALAMIN\DEXPANTHENOL\NIACINAMIDE\PYRIDOXINE HYDROCHLORIDE\RIBOFLAVIN 5^-PHOSPHATE SODIUM\THIAMINE HYDROCHLORIDE\VITAMIN B COMPLEX
  4. NAC [Concomitant]
  5. KAINACE [Concomitant]
  6. CEFUROXIME. [Suspect]
     Active Substance: CEFUROXIME
     Indication: LYME DISEASE
     Dosage: 2 PILLS BY MOUTH
     Dates: start: 20130915, end: 20131111
  7. POBIOTICS [Concomitant]
  8. TOPAMAX [Concomitant]
     Active Substance: TOPIRAMATE
  9. GLUTATIONE [Concomitant]
  10. KLONOPIN [Concomitant]
     Active Substance: CLONAZEPAM
  11. LEXAPRO [Concomitant]
     Active Substance: ESCITALOPRAM OXALATE
  12. VITAMIN D [Concomitant]
     Active Substance: CHOLECALCIFEROL
  13. FISH OIL [Concomitant]
     Active Substance: FISH OIL
  14. MAGNESIUIM [Concomitant]

REACTIONS (4)
  - Suicidal ideation [None]
  - Social avoidant behaviour [None]
  - Depression [None]
  - Lacrimation increased [None]

NARRATIVE: CASE EVENT DATE: 20131004
